FAERS Safety Report 16883789 (Version 1)
Quarter: 2019Q4

REPORT INFORMATION
  Report Type: Spontaneous
  Country: US (occurrence: US)
  Receive Date: 20191004
  Receipt Date: 20191004
  Transmission Date: 20200122
  Serious: No
  Sender: FDA-Public Use
  Company Number: US-TEVA-2019-US-1118038

PATIENT
  Sex: Female

DRUGS (1)
  1. PREGABALIN TEVA [Suspect]
     Active Substance: PREGABALIN
     Indication: DIABETIC NEUROPATHY
     Dosage: DOSE STRENGTH: 225
     Route: 065
     Dates: start: 20190927

REACTIONS (4)
  - Dizziness [Unknown]
  - Drug ineffective [Unknown]
  - Product substitution issue [Unknown]
  - Altered visual depth perception [Unknown]

NARRATIVE: CASE EVENT DATE: 20190927
